FAERS Safety Report 6759068-X (Version None)
Quarter: 2010Q2

REPORT INFORMATION
  Report Type: 
  Country: None (occurrence: None)
  Receive Date: 20100607
  Receipt Date: 20100601
  Transmission Date: 20101027
  Serious: No
  Sender: FDA-Public Use
  Company Number: JP-EISAI INC.-E2020-06721-SPO-JP

PATIENT
  Age: 86 Year
  Sex: Female

DRUGS (6)
  1. ARICEPT [Suspect]
     Dosage: UNKNOWN
     Route: 048
     Dates: end: 20100510
  2. CANDESARTAN CILEXETIL [Suspect]
     Indication: DRUG USE FOR UNKNOWN INDICATION
     Dosage: UNKNOWN
     Route: 048
     Dates: end: 20100510
  3. AMOBAN [Suspect]
     Indication: DRUG USE FOR UNKNOWN INDICATION
     Dosage: UNKNOWN
     Route: 048
     Dates: end: 20100510
  4. RESLIN [Suspect]
     Indication: DRUG USE FOR UNKNOWN INDICATION
     Dosage: UNKNOWN
     Route: 048
     Dates: end: 20100510
  5. DIART [Suspect]
     Indication: DRUG USE FOR UNKNOWN INDICATION
     Dosage: UNKNOWN
     Route: 048
     Dates: end: 20100510
  6. SELBEX [Suspect]
     Indication: DRUG USE FOR UNKNOWN INDICATION
     Route: 048
     Dates: start: 20100407, end: 20100510

REACTIONS (1)
  - PLATELET COUNT DECREASED [None]
